FAERS Safety Report 7959214-6 (Version None)
Quarter: 2011Q4

REPORT INFORMATION
  Report Type: 
  Country: None (occurrence: None)
  Receive Date: 20111206
  Receipt Date: 20111202
  Transmission Date: 20120403
  Serious: Yes (Disabling)
  Sender: FDA-Public Use
  Company Number: DK-PFIZER INC-2011226373

PATIENT
  Age: 36 Year
  Sex: Male
  Weight: 80 kg

DRUGS (12)
  1. ALMINOX [Concomitant]
  2. SEROQUEL [Suspect]
     Indication: ANXIETY
     Dosage: 800 MG, 1X/DAY
     Route: 048
     Dates: start: 20090130, end: 20110525
  3. SEROQUEL [Suspect]
     Indication: DEPRESSED MOOD
  4. RAMIPRIL [Concomitant]
  5. CETIRIZINE [Concomitant]
  6. LYRICA [Suspect]
     Indication: ANXIETY
     Dosage: 150 MG, 1X/DAY
     Route: 048
     Dates: start: 20091210, end: 20110826
  7. PANTOPRAZOLE [Concomitant]
  8. ATENOLOL [Concomitant]
  9. ESCITALOPRAM [Concomitant]
  10. LITAREX [Concomitant]
  11. NICORETTE [Concomitant]
  12. VALPROIC ACID [Suspect]
     Indication: BIPOLAR DISORDER
     Dosage: 2000 MG DAILY
     Route: 048
     Dates: start: 20090320, end: 20110427

REACTIONS (1)
  - ATONIC URINARY BLADDER [None]
